FAERS Safety Report 10157192 (Version 4)
Quarter: 2014Q3

REPORT INFORMATION
  Report Type: Spontaneous
  Country: IT (occurrence: IT)
  Receive Date: 20140507
  Receipt Date: 20140723
  Transmission Date: 20150326
  Serious: Yes (Death, Hospitalization)
  Sender: FDA-Public Use
  Company Number: IT-SA-2014SA053768

PATIENT
  Age: 85 Year
  Sex: Female

DRUGS (12)
  1. FUROSEMIDE. [Concomitant]
     Active Substance: FUROSEMIDE
  2. LOSARTAN [Concomitant]
     Active Substance: LOSARTAN
  3. ASA [Concomitant]
     Active Substance: ASPIRIN
  4. PROTON PUMP INHIBITORS [Concomitant]
     Active Substance: UNSPECIFIED INGREDIENT
  5. PLAVIX [Suspect]
     Active Substance: CLOPIDOGREL BISULFATE
     Indication: STENT PLACEMENT
     Route: 048
     Dates: start: 20140227, end: 20140316
  6. ALLOPURINOL. [Concomitant]
     Active Substance: ALLOPURINOL
  7. CARDIOASPIRIN [Concomitant]
     Active Substance: ASPIRIN
  8. ALDACTONE [Concomitant]
     Active Substance: SPIRONOLACTONE
  9. PLAVIX [Suspect]
     Active Substance: CLOPIDOGREL BISULFATE
     Indication: CORONARY ANGIOPLASTY
     Route: 048
     Dates: start: 20140227, end: 20140316
  10. BISOPROLOL [Concomitant]
     Active Substance: BISOPROLOL
     Dates: start: 201402
  11. ALPRAZOLAM. [Concomitant]
     Active Substance: ALPRAZOLAM
  12. MONOKET [Concomitant]
     Active Substance: ISOSORBIDE MONONITRATE

REACTIONS (2)
  - Pancytopenia [Fatal]
  - Febrile bone marrow aplasia [Fatal]
